FAERS Safety Report 24631755 (Version 1)
Quarter: 2024Q4

REPORT INFORMATION
  Report Type: Spontaneous
  Country: LU (occurrence: LU)
  Receive Date: 20241118
  Receipt Date: 20241118
  Transmission Date: 20250114
  Serious: Yes (Death)
  Sender: ALNYLAM PHARMACEUTICALS
  Company Number: LU-ALNYLAM PHARMACEUTICALS, INC.-ALN-2024-006447

PATIENT

DRUGS (1)
  1. AMVUTTRA [Suspect]
     Active Substance: VUTRISIRAN
     Indication: Product used for unknown indication
     Dosage: UNK
     Route: 065
     Dates: start: 202407, end: 202407

REACTIONS (1)
  - Death [Fatal]
